FAERS Safety Report 16428210 (Version 1)
Quarter: 2019Q2

REPORT INFORMATION
  Report Type: Spontaneous
  Country: US (occurrence: US)
  Receive Date: 20190613
  Receipt Date: 20190613
  Transmission Date: 20190711
  Serious: Yes (Other)
  Sender: FDA-Public Use
  Company Number: US-MYLANLABS-2019M1055677

PATIENT
  Age: 69 Year
  Sex: Male

DRUGS (15)
  1. PREDNISONE. [Suspect]
     Active Substance: PREDNISONE
     Indication: CHRONIC MYELOMONOCYTIC LEUKAEMIA
     Dosage: TAPER DOSE
     Route: 065
  2. PREDNISONE. [Suspect]
     Active Substance: PREDNISONE
     Indication: VASCULITIS
  3. TOCILIZUMAB. [Suspect]
     Active Substance: TOCILIZUMAB
     Indication: VASCULITIS
  4. AZACITIDINE. [Suspect]
     Active Substance: AZACITIDINE
     Indication: VASCULITIS
  5. PREDNISONE. [Suspect]
     Active Substance: PREDNISONE
     Indication: CHRONIC MYELOMONOCYTIC LEUKAEMIA
     Dosage: ADMINISTERED ALONGSIDE DECTIABINE
     Route: 048
  6. AZACITIDINE. [Suspect]
     Active Substance: AZACITIDINE
     Indication: CHRONIC MYELOMONOCYTIC LEUKAEMIA
     Dosage: ADMINISTERED ON DAYS 1-5 OF A 28-DAY CYCLE; TWO SUCH CYCLES ADMINISTERED
     Route: 065
  7. DECITABINE. [Suspect]
     Active Substance: DECITABINE
     Indication: CHRONIC MYELOMONOCYTIC LEUKAEMIA
     Dosage: ADMINISTERED ON DAYS 1-5 OF A 28-DAY CYCLE; THREE SUCH CYCLES ADMINISTERED
     Route: 065
  8. METHYLPREDNISOLONE. [Suspect]
     Active Substance: METHYLPREDNISOLONE
     Indication: VASCULITIS
     Dosage: ADMINISTERED ALONGSIDE HYDROXYCARBAMIDE
     Route: 042
  9. PREDNISONE. [Suspect]
     Active Substance: PREDNISONE
     Indication: VASCULITIS
  10. DECITABINE. [Suspect]
     Active Substance: DECITABINE
     Indication: VASCULITIS
  11. HYDROXYUREA. [Suspect]
     Active Substance: HYDROXYUREA
     Indication: CHRONIC MYELOMONOCYTIC LEUKAEMIA
     Dosage: ADMINISTERED ALONGSIDE METHYLPREDNISOLONE
     Route: 065
  12. HYDROXYUREA. [Suspect]
     Active Substance: HYDROXYUREA
     Indication: VASCULITIS
  13. METHYLPREDNISOLONE. [Suspect]
     Active Substance: METHYLPREDNISOLONE
     Indication: CHRONIC MYELOMONOCYTIC LEUKAEMIA
     Dosage: DURING FIRST ADMISSION
     Route: 042
  14. METHYLPREDNISOLONE. [Suspect]
     Active Substance: METHYLPREDNISOLONE
     Dosage: ADMINISTERED ALONGSIDE HYDROXYCARBAMIDE
     Route: 042
  15. TOCILIZUMAB. [Suspect]
     Active Substance: TOCILIZUMAB
     Indication: CHRONIC MYELOMONOCYTIC LEUKAEMIA
     Dosage: SIX DOSES ADMINISTERED
     Route: 065

REACTIONS (2)
  - Drug ineffective [Unknown]
  - Injection site reaction [Unknown]
